FAERS Safety Report 16998797 (Version 1)
Quarter: 2019Q4

REPORT INFORMATION
  Report Type: Spontaneous
  Country: PL (occurrence: PL)
  Receive Date: 20191106
  Receipt Date: 20191106
  Transmission Date: 20200122
  Serious: Yes (Hospitalization)
  Sender: FDA-Public Use
  Company Number: PL-TEVA-2019-PL-1132191

PATIENT
  Age: 21 Year
  Sex: Female
  Weight: 43.7 kg

DRUGS (2)
  1. DUPHASTON [Concomitant]
     Active Substance: DYDROGESTERONE
     Indication: AMENORRHOEA
     Route: 065
  2. METFORMIN [Suspect]
     Active Substance: METFORMIN HYDROCHLORIDE
     Indication: GENE MUTATION
     Dosage: 1700 MILLIGRAM DAILY;
     Route: 065

REACTIONS (3)
  - Condition aggravated [Unknown]
  - Paradoxical drug reaction [Unknown]
  - Insulin resistance [Unknown]
